FAERS Safety Report 8653446 (Version 2)
Quarter: 2013Q2

REPORT INFORMATION
  Report Type: Spontaneous
  Country: JP (occurrence: JP)
  Receive Date: 20120706
  Receipt Date: 20130425
  Transmission Date: 20140414
  Serious: Yes (Hospitalization, Other)
  Sender: FDA-Public Use
  Company Number: PHHY2012JP057303

PATIENT
  Age: 59 Year
  Sex: Female

DRUGS (2)
  1. CARBOPLATIN [Suspect]
     Indication: METASTASES TO LYMPH NODES
  2. PACLITAXEL [Suspect]
     Indication: METASTASES TO LYMPH NODES

REACTIONS (7)
  - Deep vein thrombosis [Unknown]
  - Pain in extremity [Unknown]
  - Fibrin D dimer increased [Unknown]
  - Local swelling [Unknown]
  - Pulmonary embolism [Unknown]
  - Prothrombin time prolonged [Unknown]
  - International normalised ratio increased [Unknown]
